FAERS Safety Report 9690288 (Version 1)
Quarter: 2013Q4

REPORT INFORMATION
  Report Type: Spontaneous
  Country: US (occurrence: US)
  Receive Date: 20131115
  Receipt Date: 20131115
  Transmission Date: 20140711
  Serious: Yes (Hospitalization)
  Sender: FDA-Public Use
  Company Number: US-LUNDBECK-DKLU1095246

PATIENT
  Age: 13 Year
  Sex: Male

DRUGS (4)
  1. SABRIL (TABLET) [Suspect]
     Indication: COMPLEX PARTIAL SEIZURES
     Dates: start: 20091026
  2. SABRIL (TABLET) [Suspect]
     Dates: start: 20091026
  3. SABRIL (TABLET) [Suspect]
  4. SABRIL (TABLET) [Suspect]

REACTIONS (1)
  - Lower limb fracture [Unknown]
